FAERS Safety Report 13188506 (Version 6)
Quarter: 2017Q2

REPORT INFORMATION
  Report Type: Report from Study
  Country: US (occurrence: US)
  Receive Date: 20170206
  Receipt Date: 20170428
  Transmission Date: 20170830
  Serious: Yes (Hospitalization)
  Sender: FDA-Public Use
  Company Number: US-BAYER-2017-021761

PATIENT
  Age: 74 Year
  Sex: Female

DRUGS (4)
  1. ADEMPAS [Suspect]
     Active Substance: RIOCIGUAT
     Indication: PULMONARY HYPERTENSION
     Dosage: 1 MG, TID
     Route: 048
  2. ADEMPAS [Suspect]
     Active Substance: RIOCIGUAT
     Indication: PULMONARY HYPERTENSION
     Dosage: 1.5 MG, TID
     Route: 048
  3. AMLODIPINE [Concomitant]
     Active Substance: AMLODIPINE BESYLATE
     Dosage: UNK
  4. ADEMPAS [Suspect]
     Active Substance: RIOCIGUAT
     Indication: PULMONARY HYPERTENSION
     Dosage: UNK
     Dates: start: 20170124

REACTIONS (10)
  - Hypotension [Unknown]
  - Bronchitis [None]
  - Hospitalisation [None]
  - Dyspnoea exertional [None]
  - Blood pressure increased [None]
  - Heart rate increased [Unknown]
  - Nervousness [Unknown]
  - Asthenia [None]
  - Heart rate increased [Unknown]
  - Tremor [None]

NARRATIVE: CASE EVENT DATE: 20170224
